FAERS Safety Report 4662519-8 (Version None)
Quarter: 2005Q2

REPORT INFORMATION
  Report Type: 
  Country: None (occurrence: None)
  Receive Date: 20050516
  Receipt Date: 20050426
  Transmission Date: 20051028
  Serious: Yes (Death)
  Sender: FDA-Public Use
  Company Number: JP-ROCHE-403186

PATIENT
  Age: 14 Year
  Sex: Male

DRUGS (1)
  1. TAMIFLU [Suspect]
     Route: 048
     Dates: start: 20050205, end: 20050205

REACTIONS (5)
  - DEPRESSED LEVEL OF CONSCIOUSNESS [None]
  - ENCEPHALOPATHY [None]
  - FALL [None]
  - MENTAL DISORDER [None]
  - SHOCK HAEMORRHAGIC [None]
